FAERS Safety Report 10136190 (Version 2)
Quarter: 2014Q2

REPORT INFORMATION
  Report Type: Report from Study
  Country: CN (occurrence: CN)
  Receive Date: 20140429
  Receipt Date: 20140602
  Transmission Date: 20141212
  Serious: Yes (Life-Threatening)
  Sender: FDA-Public Use
  Company Number: CN-BRISTOL-MYERS SQUIBB COMPANY-20665014

PATIENT
  Age: 35 Year
  Sex: Male

DRUGS (3)
  1. BYETTA [Suspect]
     Indication: DIABETES MELLITUS
     Route: 058
     Dates: start: 20140407, end: 20140419
  2. NOVORAPID [Concomitant]
  3. INSULIN [Concomitant]

REACTIONS (2)
  - Rash erythematous [Recovered/Resolved]
  - Dyspnoea [Recovered/Resolved]
